FAERS Safety Report 12476091 (Version 1)
Quarter: 2016Q2

REPORT INFORMATION
  Report Type: Spontaneous
  Country: IT (occurrence: IT)
  Receive Date: 20160617
  Receipt Date: 20160617
  Transmission Date: 20160815
  Serious: Yes (Hospitalization)
  Sender: FDA-Public Use
  Company Number: IT-TEVA-668072ACC

PATIENT
  Age: 93 Year
  Sex: Female
  Weight: 58 kg

DRUGS (1)
  1. CLOPIDOGREL [Suspect]
     Active Substance: CLOPIDOGREL BISULFATE
     Indication: CORONARY ARTERY DILATATION
     Dosage: 75 MILLIGRAM DAILY; 75 MG DAILY
     Dates: start: 20160325, end: 20160418

REACTIONS (4)
  - Asthenia [Unknown]
  - Hemiplegia [Unknown]
  - Dysarthria [Unknown]
  - Aphasia [Unknown]

NARRATIVE: CASE EVENT DATE: 20160418
